FAERS Safety Report 6914693-8 (Version None)
Quarter: 2010Q3

REPORT INFORMATION
  Report Type: 
  Country: None (occurrence: None)
  Receive Date: 20100804
  Receipt Date: 20100728
  Transmission Date: 20110219
  Serious: Yes (Hospitalization, Other)
  Sender: FDA-Public Use
  Company Number: 2010SP017466

PATIENT
  Age: 27 Year
  Sex: Female
  Weight: 113.3993 kg

DRUGS (1)
  1. NUVARING [Suspect]
     Indication: OVARIAN CYST
     Dates: start: 20080501, end: 20080701

REACTIONS (16)
  - ANTIPHOSPHOLIPID SYNDROME [None]
  - BRONCHITIS [None]
  - CARDIAC VALVE DISEASE [None]
  - COAGULOPATHY [None]
  - DEEP VEIN THROMBOSIS [None]
  - ENDOCARDITIS [None]
  - HYPERCOAGULATION [None]
  - JOINT SWELLING [None]
  - MIGRAINE [None]
  - MULTIPLE INJURIES [None]
  - PAIN IN EXTREMITY [None]
  - PHOTOPSIA [None]
  - PULMONARY EMBOLISM [None]
  - SYSTEMIC LUPUS ERYTHEMATOSUS [None]
  - THROMBOSIS [None]
  - TRANSIENT ISCHAEMIC ATTACK [None]
